FAERS Safety Report 5609553-9 (Version None)
Quarter: 2008Q1

REPORT INFORMATION
  Report Type: 
  Country: None (occurrence: None)
  Receive Date: 20080131
  Receipt Date: 20080124
  Transmission Date: 20080703
  Serious: Yes (Hospitalization)
  Sender: FDA-Public Use
  Company Number: US-BOEHRINGER INGELHEIM GMBH, GERMANY-2008-BP-01151BP

PATIENT
  Sex: Female

DRUGS (1)
  1. MELOXICAM TABLETS [Suspect]
     Indication: OSTEOARTHRITIS
     Route: 048
     Dates: start: 20071101, end: 20080101

REACTIONS (4)
  - FAECES DISCOLOURED [None]
  - GASTROINTESTINAL ULCER [None]
  - MELAENA [None]
  - SYNCOPE [None]
